FAERS Safety Report 18182216 (Version 2)
Quarter: 2020Q3

REPORT INFORMATION
  Report Type: Other
  Country: US (occurrence: US)
  Receive Date: 20200821
  Receipt Date: 20200923
  Transmission Date: 20201103
  Serious: Yes (Hospitalization, Other)
  Sender: FDA-Public Use
  Company Number: US-AMAG PHARMACEUTICALS, INC.-AMAG202002708

PATIENT
  Age: 35 Year
  Sex: Female

DRUGS (5)
  1. MAKENA [Suspect]
     Active Substance: HYDROXYPROGESTERONE CAPROATE
     Indication: PREMATURE DELIVERY
     Route: 058
     Dates: start: 20200423, end: 20200724
  2. CLARITIN [Concomitant]
     Active Substance: LORATADINE
     Indication: MULTIPLE ALLERGIES
     Dosage: PRN
  3. OTC FOLIC ACID [Concomitant]
     Indication: PREGNANCY
     Dosage: 1 MG DAILY
  4. BABY ASA 81 MG [Concomitant]
     Indication: PREGNANCY
  5. OTC PRENATAL VITAMIN [Concomitant]
     Indication: PREGNANCY
     Dosage: 1 TAB DAILY

REACTIONS (2)
  - Premature delivery [Recovered/Resolved]
  - Pre-eclampsia [Unknown]

NARRATIVE: CASE EVENT DATE: 20200727
